FAERS Safety Report 7255169-0 (Version None)
Quarter: 2011Q1

REPORT INFORMATION
  Report Type: 
  Country: None (occurrence: None)
  Receive Date: 20110129
  Receipt Date: 20100208
  Transmission Date: 20110831
  Serious: No
  Sender: FDA-Public Use
  Company Number: US-ABBOTT-10P-163-0625373-00

PATIENT
  Sex: Male
  Weight: 86.26 kg

DRUGS (7)
  1. HUMIRA [Suspect]
     Dates: start: 20091201, end: 20091201
  2. HUMIRA [Suspect]
     Dates: start: 20040101, end: 20090501
  3. HUMIRA [Suspect]
     Dates: end: 20091101
  4. PRILOSEC [Concomitant]
     Indication: GASTROOESOPHAGEAL REFLUX DISEASE
     Dosage: UNKNOWN
     Route: 048
  5. HUMIRA [Suspect]
     Indication: JUVENILE ARTHRITIS
     Dates: start: 20090101
  6. HUMIRA [Suspect]
     Dates: end: 20090801
  7. HUMIRA [Suspect]
     Dates: end: 20090701

REACTIONS (3)
  - SINUSITIS [None]
  - ARTHRITIS [None]
  - NASAL SEPTUM DEVIATION [None]
